FAERS Safety Report 7071307-7 (Version None)
Quarter: 2010Q4

REPORT INFORMATION
  Report Type: 
  Country: None (occurrence: None)
  Receive Date: 20101029
  Receipt Date: 20101018
  Transmission Date: 20110411
  Serious: Yes (Death, Disabling)
  Sender: FDA-Public Use
  Company Number: JP-AMGEN-KDC436578

PATIENT

DRUGS (18)
  1. PANITUMUMAB [Suspect]
     Dosage: 6 MG/KG, Q2WK
     Route: 041
     Dates: start: 20100623, end: 20100707
  2. FLUOROURACIL [Suspect]
     Dosage: 1000 MG, QWK
     Route: 040
     Dates: start: 20100623, end: 20100714
  3. FLUOROURACIL [Suspect]
     Dosage: 600 MG/M2, QWK
     Route: 041
     Dates: start: 20100623, end: 20100714
  4. CALCIUM LEVOFOLINATE [Concomitant]
     Dosage: 250 MG/M2, QWK
     Route: 041
     Dates: start: 20100623, end: 20100714
  5. SINSERON [Concomitant]
     Dosage: UNK UNK, UNK
     Route: 048
  6. SINSERON [Concomitant]
     Route: 048
  7. MEYLON [Concomitant]
     Dosage: UNK UNK, UNK
     Route: 042
  8. MEYLON [Concomitant]
     Route: 042
  9. NOVO HEPARIN [Concomitant]
     Dosage: UNK UNK, UNK
     Route: 042
  10. NOVO HEPARIN [Concomitant]
     Route: 042
  11. DIGOXIN [Concomitant]
     Dosage: UNK UNK, UNK
     Route: 048
  12. DIGOXIN [Concomitant]
     Route: 048
  13. MICARDIS [Concomitant]
     Dosage: UNK UNK, UNK
     Route: 048
     Dates: start: 20071201, end: 20100727
  14. MICARDIS [Concomitant]
     Route: 048
     Dates: start: 20071201, end: 20100727
  15. TSUMURA DAIKENTYUTO [Concomitant]
     Dosage: UNK UNK, UNK
     Route: 048
  16. TSUMURA DAIKENTYUTO [Concomitant]
     Route: 048
  17. EVIPROSTAT [Concomitant]
     Indication: BENIGN PROSTATIC HYPERPLASIA
     Route: 048
  18. GASTER D [Concomitant]
     Indication: GASTRITIS
     Route: 048

REACTIONS (5)
  - DERMATITIS ACNEIFORM [None]
  - DIARRHOEA [None]
  - PNEUMONIA [None]
  - RENAL FAILURE [None]
  - STOMATITIS [None]
